FAERS Safety Report 18230621 (Version 2)
Quarter: 2020Q3

REPORT INFORMATION
  Report Type: Report from Study
  Country: US (occurrence: US)
  Receive Date: 20200904
  Receipt Date: 20200930
  Transmission Date: 20201103
  Serious: Yes (Death, Other)
  Sender: FDA-Public Use
  Company Number: US-UCBSA-2020027895

PATIENT
  Age: 70 Year
  Sex: Female

DRUGS (2)
  1. LACOSAMIDE. [Suspect]
     Active Substance: LACOSAMIDE
     Indication: EPILEPSY
     Dosage: 300MG AT NIGHT AND 200MG IN THE MORNING
     Route: 048
     Dates: start: 2019
  2. LACOSAMIDE. [Suspect]
     Active Substance: LACOSAMIDE
     Dosage: 200 MILLIGRAM, 2X/DAY (BID)
     Route: 048
     Dates: end: 202006

REACTIONS (5)
  - Coma [Unknown]
  - Seizure [Unknown]
  - Off label use [Unknown]
  - Prescribed overdose [Unknown]
  - Death [Fatal]

NARRATIVE: CASE EVENT DATE: 2019
